FAERS Safety Report 11124314 (Version 1)
Quarter: 2015Q2

REPORT INFORMATION
  Report Type: Spontaneous
  Country: US (occurrence: None)
  Receive Date: 20150519
  Receipt Date: 20150519
  Transmission Date: 20150821
  Serious: Yes (Disabling)
  Sender: FDA-Public Use
  Company Number: None

PATIENT
  Age: 49 Year
  Sex: Male
  Weight: 77.11 kg

DRUGS (12)
  1. ASPIRIN. [Concomitant]
     Active Substance: ASPIRIN
  2. NOVOLO INSULIN [Concomitant]
  3. ATORVASTATIN [Concomitant]
     Active Substance: ATORVASTATIN
  4. LISINOPRIL. [Concomitant]
     Active Substance: LISINOPRIL
  5. OMEPRAZOLE. [Concomitant]
     Active Substance: OMEPRAZOLE
  6. METFORMIN [Concomitant]
     Active Substance: METFORMIN HYDROCHLORIDE
  7. DIVALPROEX 250 MG SUNPHARMA [Suspect]
     Active Substance: DIVALPROEX SODIUM
     Indication: MANIA
     Route: 048
  8. LEVOTHYROXIN [Concomitant]
     Active Substance: LEVOTHYROXINE
  9. ASMANEX [Concomitant]
     Active Substance: MOMETASONE FUROATE
  10. LAMICTAL [Concomitant]
     Active Substance: LAMOTRIGINE
  11. PROVENTIL [Concomitant]
     Active Substance: ALBUTEROL
  12. LITHIUM CARBONATE ER [Concomitant]
     Active Substance: LITHIUM CARBONATE

REACTIONS (3)
  - Vision blurred [None]
  - Diplopia [None]
  - Visual impairment [None]

NARRATIVE: CASE EVENT DATE: 20150323
